FAERS Safety Report 8717177 (Version 2)
Quarter: 2012Q4

REPORT INFORMATION
  Report Type: 
  Country: US (occurrence: US)
  Receive Date: 20120810
  Receipt Date: 20120830
  Transmission Date: 20130627
  Serious: Yes (Hospitalization)
  Sender: FDA-Public Use
  Company Number: PHEH2012US015460

PATIENT
  Sex: Female

DRUGS (18)
  1. NEORAL [Suspect]
     Indication: RENAL TRANSPLANT
     Dosage: 75mg Am, 50mg PM
     Route: 048
  2. NEORAL [Suspect]
     Dosage: 50 mg, BIW
     Dates: start: 20100226
  3. ADVAIR [Suspect]
     Dosage: 1 DF, BID
     Dates: start: 20100226
  4. ALBUTEROL [Concomitant]
     Dosage: 1 DF, Q6H PRN
     Dates: start: 20100226
  5. ALLOPURINOL [Concomitant]
     Dosage: 100 mg, BID
     Dates: start: 20090508
  6. ASPIRIN [Concomitant]
     Dosage: 325 mg, daily dose
     Dates: start: 20100226
  7. CELLCEPT [Concomitant]
     Dosage: 1 g, BID
     Dates: start: 20100226
  8. ERGOCALCIFEROL [Concomitant]
     Dosage: 50000 U, QW
     Dates: start: 20101208
  9. HYDRALAZINE [Concomitant]
     Dosage: 25 mg, TID
     Dates: start: 20100226
  10. INSULIN PEN [Concomitant]
     Dosage: 6 U, per order
     Dates: start: 20100226
  11. KLONOPIN [Concomitant]
  12. LISINOPRIL [Concomitant]
     Dosage: 10 mg, daily
     Dates: start: 20110218
  13. LOPRESSOR [Concomitant]
     Dosage: 50 mg, BID
     Dates: start: 20100226
  14. PREDNISONE [Concomitant]
     Dosage: 5 mg, daily
     Dates: start: 20070821
  15. PRILOSEC [Concomitant]
     Dosage: 20 mg, BID
     Dates: start: 20100226
  16. TORSEMIDE [Concomitant]
     Dosage: 20 mg, as needed
     Dates: start: 20100316
  17. VICODIN [Concomitant]
     Dosage: 1 DF, per order
  18. STEROIDS NOS [Concomitant]

REACTIONS (2)
  - Hernia obstructive [Unknown]
  - Impaired healing [Unknown]
